FAERS Safety Report 14427471 (Version 1)
Quarter: 2018Q1

REPORT INFORMATION
  Report Type: Spontaneous
  Country: US (occurrence: US)
  Receive Date: 20180123
  Receipt Date: 20180123
  Transmission Date: 20180509
  Serious: No
  Sender: FDA-Public Use
  Company Number: US-IMPAX LABORATORIES, INC-2017-IPXL-03729

PATIENT
  Age: 93 Year
  Sex: Male

DRUGS (1)
  1. RYTARY [Suspect]
     Active Substance: CARBIDOPA\LEVODOPA
     Indication: PARKINSON^S DISEASE
     Dosage: 36.25/145 MG ONE CAPSULE TWO TIMES A DAY
     Route: 065
     Dates: start: 20171027, end: 20171122

REACTIONS (3)
  - Balance disorder [Recovered/Resolved]
  - Constipation [Recovered/Resolved]
  - Disorientation [Recovered/Resolved]
